FAERS Safety Report 7608667-1 (Version None)
Quarter: 2011Q3

REPORT INFORMATION
  Report Type: 
  Country: None (occurrence: None)
  Receive Date: 20110714
  Receipt Date: 20110712
  Transmission Date: 20111222
  Serious: Yes (Death, Hospitalization)
  Sender: FDA-Public Use
  Company Number: JP-B.I. PHARMACEUTICALS,INC./RIDGEFIELD-2011-BP-15856YA

PATIENT
  Sex: Male

DRUGS (3)
  1. FLOMOX [Suspect]
     Indication: URINARY TRACT INFECTION
     Route: 065
     Dates: start: 20101028, end: 20101029
  2. PELEX [Suspect]
     Indication: PYREXIA
     Route: 065
     Dates: start: 20101027, end: 20101029
  3. TAMSULOSIN HCL [Suspect]
     Indication: URINARY RETENTION
     Route: 048
     Dates: start: 20101028, end: 20101029

REACTIONS (2)
  - SEPSIS [None]
  - DRUG ERUPTION [None]
